FAERS Safety Report 7459544-0 (Version None)
Quarter: 2011Q2

REPORT INFORMATION
  Report Type: 
  Country: None (occurrence: None)
  Receive Date: 20110504
  Receipt Date: 20110504
  Transmission Date: 20111010
  Serious: Yes (Hospitalization)
  Sender: FDA-Public Use
  Company Number: None

PATIENT
  Age: 60 Year
  Sex: Male
  Weight: 74.1 kg

DRUGS (2)
  1. 5-AZACITADINE [Suspect]
     Indication: RENAL CELL CARCINOMA
     Dosage: 75MG/M2 DAYS 1-7 Q 28 DAY SUB-CUTANEOUS
     Route: 058
     Dates: start: 20110405, end: 20110411
  2. BEVACIZAMAB [Suspect]
     Indication: RENAL CELL CARCINOMA
     Dosage: 10MG/KG EVERY 2 WEEKS IV
     Route: 042
     Dates: start: 20110405, end: 20110419

REACTIONS (2)
  - BLOOD POTASSIUM INCREASED [None]
  - HYPERCALCAEMIA [None]
